FAERS Safety Report 8605369 (Version 3)
Quarter: 2012Q4

REPORT INFORMATION
  Report Type: Report from Study
  Country: US (occurrence: US)
  Receive Date: 20120608
  Receipt Date: 20121107
  Transmission Date: 20130627
  Serious: Yes (Life-Threatening, Hospitalization, Disabling)
  Sender: FDA-Public Use
  Company Number: US-NOVOPROD-352502

PATIENT
  Age: 56 Year
  Sex: Male
  Weight: 136.87 kg

DRUGS (1)
  1. LIRAGLUTIDE FLEXPEN [Suspect]
     Indication: TYPE 2 DIABETES MELLITUS
     Dosage: 1.8 mg, qd
     Route: 058
     Dates: start: 20110929, end: 20120311

REACTIONS (1)
  - Cardiac failure congestive [Recovered/Resolved with Sequelae]
